FAERS Safety Report 4283969-8 (Version None)
Quarter: 2004Q1

REPORT INFORMATION
  Report Type: 
  Country: None (occurrence: None)
  Receive Date: 20040121
  Receipt Date: 20021211
  Transmission Date: 20041129
  Serious: Yes (Other)
  Sender: FDA-Public Use
  Company Number: A03200201539

PATIENT
  Age: 84 Year
  Sex: Female
  Weight: 63.5036 kg

DRUGS (5)
  1. PLAVIX [Suspect]
     Indication: PERIPHERAL VASCULAR DISORDER
     Dosage: 75 MG QD - ORAL
     Route: 048
     Dates: start: 20021127
  2. GLYCERYL TRINITRATE [Concomitant]
  3. DILTIAZEM HYDROCHLORIDE [Concomitant]
  4. SIMVASTATIN [Concomitant]
  5. ACETYLSALICYLIC ACID [Concomitant]

REACTIONS (2)
  - EYE HAEMORRHAGE [None]
  - PLATELET COUNT DECREASED [None]
